FAERS Safety Report 6329757-X (Version None)
Quarter: 2009Q3

REPORT INFORMATION
  Report Type: 
  Country: None (occurrence: None)
  Receive Date: 20090826
  Receipt Date: 20090818
  Transmission Date: 20100115
  Serious: Yes (Other)
  Sender: FDA-Public Use
  Company Number: US-PFIZER INC-2009256485

PATIENT
  Age: 24 Year
  Sex: Female

DRUGS (2)
  1. NELFINAVIR MESILATE [Suspect]
  2. COMBIVIR [Suspect]

REACTIONS (1)
  - HEPATIC FAILURE [None]
